FAERS Safety Report 10218443 (Version 1)
Quarter: 2014Q2

REPORT INFORMATION
  Report Type: Report from Study
  Country: US (occurrence: US)
  Receive Date: 20140605
  Receipt Date: 20140605
  Transmission Date: 20141212
  Serious: Yes (Other)
  Sender: FDA-Public Use
  Company Number: PHEH2014US011059

PATIENT
  Sex: Female

DRUGS (1)
  1. MYFORTIC [Suspect]
     Indication: RENAL TRANSPLANT
     Dosage: 2 DF, BID
     Route: 048

REACTIONS (5)
  - Intermittent claudication [Unknown]
  - Diabetes mellitus [Unknown]
  - Weight decreased [Unknown]
  - Myalgia [Unknown]
  - Dyslipidaemia [Unknown]
